FAERS Safety Report 23980648 (Version 4)
Quarter: 2025Q3

REPORT INFORMATION
  Report Type: Report from Study
  Country: US (occurrence: US)
  Receive Date: 20240617
  Receipt Date: 20250810
  Transmission Date: 20251020
  Serious: No
  Sender: ALEXION PHARMACEUTICALS
  Company Number: US-ALXN-A202310001

PATIENT
  Sex: Male

DRUGS (2)
  1. SOLIRIS [Suspect]
     Active Substance: ECULIZUMAB
     Indication: Myasthenia gravis
     Route: 065
  2. ULTOMIRIS [Suspect]
     Active Substance: RAVULIZUMAB-CWVZ
     Indication: Product used for unknown indication
     Route: 065

REACTIONS (8)
  - Feeling abnormal [Unknown]
  - Infusion site bruising [Unknown]
  - Diplopia [Not Recovered/Not Resolved]
  - Eyelid ptosis [Unknown]
  - Gait disturbance [Unknown]
  - Vascular device user [Unknown]
  - Headache [Unknown]
  - Fatigue [Unknown]
